FAERS Safety Report 9143104 (Version 1)
Quarter: 2013Q1

REPORT INFORMATION
  Report Type: Spontaneous
  Country: FR (occurrence: FR)
  Receive Date: 20130306
  Receipt Date: 20130306
  Transmission Date: 20140127
  Serious: Yes (Hospitalization)
  Sender: FDA-Public Use
  Company Number: FR-PFIZER INC-2013074219

PATIENT
  Age: 68 Year
  Sex: Male

DRUGS (17)
  1. LYRICA [Suspect]
     Dosage: UNK
     Route: 048
     Dates: start: 20121106, end: 20121126
  2. BISOCE [Suspect]
     Dosage: 1.25 MG/DAY
     Route: 048
     Dates: start: 20121121, end: 20121203
  3. XATRAL [Suspect]
     Dosage: 10 MG, 1X/DAY
     Route: 048
     Dates: end: 20121127
  4. CELLCEPT [Concomitant]
     Dosage: UNK
  5. RIVOTRIL [Concomitant]
     Dosage: UNK
  6. PRAVASTATIN [Concomitant]
     Dosage: UNK
  7. METFORMIN [Concomitant]
     Dosage: UNK
  8. NOVORAPID [Concomitant]
     Dosage: UNK
  9. CORTANCYL [Concomitant]
     Dosage: UNK
  10. NEORAL [Concomitant]
     Dosage: UNK
  11. GLIMEPIRIDE [Concomitant]
     Dosage: UNK
  12. CEFTRIAXONE [Concomitant]
     Dosage: UNK
  13. BACTRIM [Concomitant]
     Dosage: UNK
  14. ASPEGIC [Concomitant]
     Dosage: UNK
  15. LANTUS [Concomitant]
     Dosage: UNK
  16. LOVENOX [Concomitant]
     Dosage: UNK
  17. MOVICOL [Concomitant]
     Dosage: UNK

REACTIONS (5)
  - Asthenia [Recovered/Resolved]
  - Hypotension [Recovered/Resolved]
  - Microcytic anaemia [Recovered/Resolved]
  - Klebsiella infection [Unknown]
  - Prostatitis [Unknown]
